FAERS Safety Report 22538391 (Version 1)
Quarter: 2023Q2

REPORT INFORMATION
  Report Type: Report from Study
  Country: US (occurrence: US)
  Receive Date: 20230609
  Receipt Date: 20230609
  Transmission Date: 20230721
  Serious: Yes (Other)
  Sender: FDA-Public Use
  Company Number: US-JNJFOC-20230571842

PATIENT
  Age: 48 Year
  Sex: Female

DRUGS (2)
  1. ESKETAMINE [Suspect]
     Active Substance: ESKETAMINE
     Indication: Depression
     Dosage: ^56 MG, 6 TOTAL DOSES^
     Dates: start: 20230425, end: 20230512
  2. ESKETAMINE [Suspect]
     Active Substance: ESKETAMINE
     Dosage: RECENT DOSE (84 MG) ON 31-MAY-2023?^84 MG, 2 TOTAL DOSES^
     Dates: start: 20230519, end: 20230519

REACTIONS (6)
  - Suicidal ideation [Recovered/Resolved]
  - Memory impairment [Unknown]
  - Product dose omission issue [Unknown]
  - Disturbance in attention [Unknown]
  - Malaise [Unknown]
  - Disorientation [Unknown]

NARRATIVE: CASE EVENT DATE: 20230101
